FAERS Safety Report 7971532-4 (Version None)
Quarter: 2011Q4

REPORT INFORMATION
  Report Type: 
  Country: None (occurrence: None)
  Receive Date: 20111212
  Receipt Date: 20111128
  Transmission Date: 20120403
  Serious: Yes (Hospitalization, Other)
  Sender: FDA-Public Use
  Company Number: US-ELI_LILLY_AND_COMPANY-US201101002732

PATIENT
  Sex: Female

DRUGS (11)
  1. FORTEO [Suspect]
     Indication: OSTEOPOROSIS
     Dosage: 20 UG, QD
     Dates: start: 20100601
  2. FORTEO [Suspect]
     Dosage: 20 UG, QD
  3. TRAZODONE HCL [Concomitant]
  4. FORTEO [Suspect]
     Dosage: 20 UG, QD
     Route: 065
  5. NAPROXEN [Concomitant]
  6. VICODIN [Concomitant]
     Dosage: UNK, PRN
  7. CLONAZEPAM [Concomitant]
  8. CYMBALTA [Suspect]
     Indication: FIBROMYALGIA
     Dosage: 60 MG, BID
     Dates: start: 20100701
  9. SOMA [Concomitant]
  10. FORTEO [Suspect]
     Dosage: 20 UG, QD
  11. CLONIDINE [Concomitant]

REACTIONS (31)
  - PRURITUS GENERALISED [None]
  - VISUAL IMPAIRMENT [None]
  - VAGINAL INFECTION [None]
  - MUSCLE STRAIN [None]
  - BONE DISORDER [None]
  - DERMATITIS CONTACT [None]
  - HYPERSENSITIVITY [None]
  - INJECTION SITE HAEMATOMA [None]
  - LOSS OF CONSCIOUSNESS [None]
  - SLEEP DISORDER [None]
  - PYURIA [None]
  - FRACTURE [None]
  - JOINT WARMTH [None]
  - HYPERHIDROSIS [None]
  - PNEUMONIA [None]
  - FALL [None]
  - BLOOD URINE PRESENT [None]
  - CYSTITIS [None]
  - CONTUSION [None]
  - DRUG DOSE OMISSION [None]
  - BLISTER [None]
  - MOVEMENT DISORDER [None]
  - JOINT SWELLING [None]
  - LIMB INJURY [None]
  - ARTHRALGIA [None]
  - PELVIC FRACTURE [None]
  - INJECTION SITE ERYTHEMA [None]
  - HIGH FREQUENCY ABLATION [None]
  - ANKLE FRACTURE [None]
  - FOOT FRACTURE [None]
  - SNEEZING [None]
